FAERS Safety Report 10538220 (Version 1)
Quarter: 2014Q4

REPORT INFORMATION
  Report Type: Spontaneous
  Country: SE (occurrence: SE)
  Receive Date: 20141023
  Receipt Date: 20141023
  Transmission Date: 20150529
  Serious: Yes (Death, Hospitalization)
  Sender: FDA-Public Use
  Company Number: SE-PFIZER INC-2014290144

PATIENT
  Age: 69 Year
  Sex: Male

DRUGS (11)
  1. PREDNISOLONE. [Suspect]
     Active Substance: PREDNISOLONE
     Indication: MICROSCOPIC POLYANGIITIS
     Dosage: 5 TABLETS DAILY
     Route: 048
     Dates: start: 20140718, end: 20140821
  2. KALCIPOS-D [Concomitant]
     Active Substance: CALCIUM CARBONATE\CHOLECALCIFEROL
  3. MYCOSTATIN [Concomitant]
     Active Substance: NYSTATIN
  4. IMOVANE [Concomitant]
     Active Substance: ZOPICLONE
  5. MYCOPHENOLATE MOFETIL SANDOZ [Suspect]
     Active Substance: MYCOPHENOLATE MOFETIL
     Indication: MICROSCOPIC POLYANGIITIS
     Dosage: 2 TABLETS DAILY
     Route: 048
     Dates: start: 20131114, end: 20140721
  6. ALVEDON [Concomitant]
     Active Substance: ACETAMINOPHEN
     Dosage: 1 G, UNK
  7. SOLU-MEDROL [Suspect]
     Active Substance: METHYLPREDNISOLONE SODIUM SUCCINATE
     Indication: MICROSCOPIC POLYANGIITIS
     Dosage: 250 MG, THREE DOSES
     Dates: start: 20140822, end: 20140824
  8. MABTHERA [Suspect]
     Active Substance: RITUXIMAB
     Indication: MICROSCOPIC POLYANGIITIS
     Dosage: 700 MG, TWO DOSES
     Route: 042
     Dates: start: 20140721, end: 20140731
  9. OMEPRAZOLE. [Concomitant]
     Active Substance: OMEPRAZOLE
  10. PROPAVAN [Concomitant]
     Active Substance: PROPIOMAZINE
     Dosage: 25 MG, UNK
  11. ENALAPRIL [Concomitant]
     Active Substance: ENALAPRIL

REACTIONS (2)
  - Acute hepatic failure [Fatal]
  - Adenovirus infection [Fatal]

NARRATIVE: CASE EVENT DATE: 201408
